FAERS Safety Report 9399272 (Version 3)
Quarter: 2013Q4

REPORT INFORMATION
  Report Type: Spontaneous
  Country: US (occurrence: US)
  Receive Date: 20130715
  Receipt Date: 20131031
  Transmission Date: 20140711
  Serious: No
  Sender: FDA-Public Use
  Company Number: US-PFIZER INC-2013206082

PATIENT
  Age: 49 Year
  Sex: Female
  Weight: 62.59 kg

DRUGS (6)
  1. EFFEXOR XR [Suspect]
     Indication: DEPRESSION
     Dosage: 300 MG, DAILY
     Route: 048
  2. EFFEXOR XR [Suspect]
     Dosage: 300 MG, DAILY
     Route: 048
  3. EFFEXOR XR [Suspect]
     Dosage: 300 MG, DAILY
     Route: 048
  4. EFFEXOR XR [Suspect]
     Dosage: 300 MG, DAILY
     Route: 048
  5. WELLBUTRIN [Concomitant]
     Indication: DEPRESSION
     Dosage: 300 MG, DAILY
  6. LEFLUNOMIDE [Concomitant]
     Indication: RHEUMATOID ARTHRITIS
     Dosage: UNK

REACTIONS (2)
  - Product physical issue [Unknown]
  - Drug withdrawal syndrome [Unknown]
